FAERS Safety Report 7331713-X (Version None)
Quarter: 2011Q1

REPORT INFORMATION
  Report Type: 
  Country: None (occurrence: None)
  Receive Date: 20110304
  Receipt Date: 20110221
  Transmission Date: 20110831
  Serious: Yes (Other)
  Sender: FDA-Public Use
  Company Number: PHHY2010CA86873

PATIENT
  Sex: Male

DRUGS (2)
  1. CLOZARIL [Suspect]
     Dosage: UNK
     Dates: start: 20091005, end: 20110125
  2. HABITROL [Concomitant]

REACTIONS (2)
  - PSYCHIATRIC DECOMPENSATION [None]
  - DRUG INEFFECTIVE [None]
